FAERS Safety Report 5535233-4 (Version None)
Quarter: 2007Q4

REPORT INFORMATION
  Report Type: 
  Country: None (occurrence: None)
  Receive Date: 20071206
  Receipt Date: 20071204
  Transmission Date: 20080405
  Serious: Yes (Hospitalization)
  Sender: FDA-Public Use
  Company Number: DE-BRISTOL-MYERS SQUIBB COMPANY-13111554

PATIENT
  Age: 62 Year
  Sex: Female

DRUGS (5)
  1. CYCLOPHOSPHAMIDE [Suspect]
     Indication: BREAST CANCER
  2. TAXOL [Suspect]
     Indication: BREAST CANCER
     Route: 042
     Dates: start: 20050804, end: 20050804
  3. EPIRUBICIN [Suspect]
     Indication: BREAST CANCER
     Route: 042
     Dates: start: 20050721, end: 20050721
  4. NEULASTA [Concomitant]
     Dosage: DRUG WAS ALSO TAKEN ON 23-SEP-2005 AND STOP ON 23-SEP-2005
     Route: 058
     Dates: start: 20050805, end: 20050805
  5. EPOETIN BETA [Concomitant]
     Dosage: DOSE UNIT = IE. DRUG WAS ALSO TAKEN ON 22-SEP-2005 AND STOP ON 22-SEP-2005
     Route: 058
     Dates: start: 20050804, end: 20050804

REACTIONS (2)
  - CATHETER RELATED INFECTION [None]
  - FALL [None]
